APPROVED DRUG PRODUCT: ESKATA
Active Ingredient: HYDROGEN PEROXIDE
Strength: 40%
Dosage Form/Route: SOLUTION;TOPICAL
Application: N209305 | Product #001
Applicant: ACLARIS THERAPEUTICS INC
Approved: Dec 14, 2017 | RLD: Yes | RS: No | Type: DISCN

PATENTS:
Patent 9980983 | Expires: Apr 21, 2035
Patent 9675639 | Expires: Jul 4, 2035
Patent 10493103 | Expires: Apr 21, 2035
Patent 10729720 | Expires: Apr 21, 2035
Patent 10098910 | Expires: Apr 21, 2035